FAERS Safety Report 21130362 (Version 1)
Quarter: 2022Q3

REPORT INFORMATION
  Report Type: Spontaneous
  Country: GB (occurrence: GB)
  Receive Date: 20220726
  Receipt Date: 20220726
  Transmission Date: 20221026
  Serious: Yes (Other)
  Sender: FDA-Public Use
  Company Number: GB-MHRA-TPP55403030C8721525YC1657641279173

PATIENT
  Age: 82 Year
  Sex: Female

DRUGS (1)
  1. DONEPEZIL [Suspect]
     Active Substance: DONEPEZIL
     Indication: Ill-defined disorder
     Dosage: UNK
     Route: 065
     Dates: start: 20220712

REACTIONS (1)
  - Bradycardia [Not Recovered/Not Resolved]

NARRATIVE: CASE EVENT DATE: 20220712
